FAERS Safety Report 24353074 (Version 1)
Quarter: 2024Q3

REPORT INFORMATION
  Report Type: Report from Study
  Country: RO (occurrence: RO)
  Receive Date: 20240923
  Receipt Date: 20240923
  Transmission Date: 20241017
  Serious: No
  Sender: ROCHE
  Company Number: RO-ROCHE-3472845

PATIENT
  Age: 58 Year
  Sex: Female
  Weight: 70.0 kg

DRUGS (1)
  1. HERCEPTIN [Suspect]
     Active Substance: TRASTUZUMAB
     Indication: Inflammatory carcinoma of the breast
     Route: 065
     Dates: start: 20200717, end: 20211231

REACTIONS (2)
  - Off label use [Unknown]
  - No adverse event [Unknown]
